FAERS Safety Report 6872804-7 (Version None)
Quarter: 2010Q3

REPORT INFORMATION
  Report Type: 
  Country: None (occurrence: None)
  Receive Date: 20100723
  Receipt Date: 20090124
  Transmission Date: 20110219
  Serious: No
  Sender: FDA-Public Use
  Company Number: US-PFIZER INC-2008089465

PATIENT
  Sex: Female
  Weight: 56.245 kg

DRUGS (9)
  1. CHANTIX [Suspect]
     Indication: SMOKING CESSATION THERAPY
     Dosage: 0.5 MG, 1X/DAY
     Route: 048
     Dates: start: 20081003
  2. CHANTIX [Suspect]
     Dosage: 1 MG, 2X/DAY
  3. ACETAMINOPHEN [Concomitant]
  4. KETOCONAZOLE [Concomitant]
     Dosage: UNK
     Route: 061
  5. KETOCONAZOLE [Concomitant]
     Dosage: UNK
  6. BECLOMETHASONE DIPROPIONATE [Concomitant]
     Dosage: UNK
  7. ALCLOMETASONE [Concomitant]
     Dosage: UNK
  8. KETOCONAZOLE EYE CREAM [Concomitant]
  9. TYLENOL [Concomitant]
     Indication: SLEEP DISORDER

REACTIONS (13)
  - ABNORMAL DREAMS [None]
  - CONJUNCTIVITIS INFECTIVE [None]
  - DRUG DOSE OMISSION [None]
  - EYE INFECTION [None]
  - EYE SWELLING [None]
  - FATIGUE [None]
  - FRUSTRATION [None]
  - INSOMNIA [None]
  - MUSCLE STRAIN [None]
  - PAIN [None]
  - STRESS [None]
  - SWELLING FACE [None]
  - TOBACCO USER [None]
